FAERS Safety Report 7115437-X (Version None)
Quarter: 2010Q4

REPORT INFORMATION
  Report Type: 
  Country: None (occurrence: None)
  Receive Date: 20101122
  Receipt Date: 20101112
  Transmission Date: 20110411
  Serious: Yes (Hospitalization)
  Sender: FDA-Public Use
  Company Number: CA-ASTRAZENECA-2010SE54684

PATIENT
  Age: 44 Year
  Sex: Female

DRUGS (1)
  1. PULMICORT [Suspect]
     Route: 055
     Dates: start: 20100101

REACTIONS (2)
  - ACCIDENTAL EXPOSURE [None]
  - SINUS OPERATION [None]
